FAERS Safety Report 25144615 (Version 2)
Quarter: 2025Q2

REPORT INFORMATION
  Report Type: Spontaneous
  Country: US (occurrence: US)
  Receive Date: 20250401
  Receipt Date: 20250408
  Transmission Date: 20250717
  Serious: No
  Sender: LEO PHARM
  Company Number: US-LEO Pharma-378727

PATIENT
  Age: 69 Year
  Sex: Female

DRUGS (1)
  1. ADBRY [Suspect]
     Active Substance: TRALOKINUMAB-LDRM
     Indication: Dermatitis atopic
     Dosage: THERAPY IS NOT ONGOING
     Route: 058

REACTIONS (1)
  - Drug ineffective [Unknown]
